FAERS Safety Report 8007120-3 (Version None)
Quarter: 2011Q4

REPORT INFORMATION
  Report Type: 
  Country: None (occurrence: None)
  Receive Date: 20111227
  Receipt Date: 20111220
  Transmission Date: 20120403
  Serious: Yes (Life-Threatening, Hospitalization, Other)
  Sender: FDA-Public Use
  Company Number: FR-PFIZER INC-2011311954

PATIENT
  Age: 85 Year
  Sex: Female

DRUGS (3)
  1. BISOPROLOL FUMARATE [Concomitant]
     Dosage: UNK
  2. PREVISCAN [Concomitant]
     Dosage: UNK
  3. CORDARONE [Suspect]
     Indication: ATRIAL FIBRILLATION
     Dosage: UNK
     Route: 048
     Dates: start: 20100501, end: 20110701

REACTIONS (2)
  - INTERSTITIAL LUNG DISEASE [None]
  - PERIPHERAL ISCHAEMIA [None]
